FAERS Safety Report 8215151-3 (Version None)
Quarter: 2012Q1

REPORT INFORMATION
  Report Type: 
  Country: None (occurrence: None)
  Receive Date: 20120314
  Receipt Date: 20120302
  Transmission Date: 20120608
  Serious: Yes (Disabling, Other)
  Sender: FDA-Public Use
  Company Number: 2012AP000639

PATIENT
  Age: 69 Year
  Sex: Female

DRUGS (6)
  1. ALENDRONATE SODIUM [Suspect]
     Indication: OSTEOPOROSIS
     Dates: start: 20050101, end: 20080401
  2. ALENDRONATE SODIUM [Suspect]
     Indication: OSTEOPOROSIS
     Dates: start: 20081001, end: 20090501
  3. ALENDRONATE SODIUM [Suspect]
     Indication: OSTEOPOROSIS
     Dates: start: 20090901, end: 20091201
  4. ALENDRONATE SODIUM [Suspect]
     Indication: OSTEOPOROSIS
     Dates: start: 20090501, end: 20090901
  5. ALENDRONATE SODIUM [Suspect]
     Indication: OSTEOPOROSIS
     Dates: start: 20080501, end: 20080801
  6. ALENDRONATE SODIUM [Suspect]
     Indication: OSTEOPOROSIS
     Dates: start: 20091201, end: 20101201

REACTIONS (11)
  - MULTIPLE INJURIES [None]
  - FEMUR FRACTURE [None]
  - FEAR OF DISEASE [None]
  - BONE DISORDER [None]
  - ANXIETY [None]
  - CONDITION AGGRAVATED [None]
  - TERMINAL STATE [None]
  - STRESS FRACTURE [None]
  - QUALITY OF LIFE DECREASED [None]
  - OSTEOPOROSIS [None]
  - LOW TURNOVER OSTEOPATHY [None]
